FAERS Safety Report 8173106-1 (Version None)
Quarter: 2012Q1

REPORT INFORMATION
  Report Type: 
  Country: None (occurrence: None)
  Receive Date: 20120229
  Receipt Date: 20120106
  Transmission Date: 20120608
  Serious: Yes (Disabling)
  Sender: FDA-Public Use
  Company Number: CA-JNJFOC-20120200227

PATIENT
  Sex: Male
  Weight: 101 kg

DRUGS (2)
  1. REMICADE [Suspect]
     Indication: RHEUMATOID ARTHRITIS
     Route: 042
     Dates: start: 20110124
  2. METHOTREXATE [Concomitant]
     Route: 065

REACTIONS (1)
  - MUSCLE SPASMS [None]
